FAERS Safety Report 24364752 (Version 3)
Quarter: 2024Q4

REPORT INFORMATION
  Report Type: Report from Study
  Country: NL (occurrence: NL)
  Receive Date: 20240926
  Receipt Date: 20241125
  Transmission Date: 20250114
  Serious: Yes (Hospitalization, Other)
  Sender: ABBVIE
  Company Number: NL-ABBVIE-5933351

PATIENT
  Age: 76 Year
  Sex: Female

DRUGS (17)
  1. CARBIDOPA\LEVODOPA [Suspect]
     Active Substance: CARBIDOPA\LEVODOPA
     Indication: Parkinson^s disease
     Dosage: MD:10.0ML; CD:3.5ML/H; ED:2.50ML GOES TO 24 HOURS
     Route: 050
     Dates: start: 20240829, end: 20240829
  2. CARBIDOPA\LEVODOPA [Suspect]
     Active Substance: CARBIDOPA\LEVODOPA
     Dosage: MD:10.0ML; CD:3.7ML/H; ED:2.50ML; CND:2.5ML/H; ED:1.00ML, LAST ADMIN DATE: 2024?DURATION TEXT: GO...
     Route: 050
     Dates: start: 20241031
  3. CARBIDOPA\LEVODOPA [Suspect]
     Active Substance: CARBIDOPA\LEVODOPA
     Dosage: MD:10.0ML; CD:3.5ML/H; ED:2.50ML, DURATION TEXT: GOES TO 24 HOURS
     Route: 050
     Dates: start: 20240829, end: 20240911
  4. CARBIDOPA\LEVODOPA [Suspect]
     Active Substance: CARBIDOPA\LEVODOPA
     Dosage: MD:10.0ML; CD:3.7ML/H; ED:2.50ML; CND:2.5ML/H; ED:1.00ML GOES TO 24 HOURS,
     Route: 050
     Dates: start: 20240911, end: 20240911
  5. CARBIDOPA\LEVODOPA [Suspect]
     Active Substance: CARBIDOPA\LEVODOPA
     Dosage: LAST ADMIN DATE: AUG 2024, REMAINS AT 24 HOURS
     Route: 050
     Dates: start: 20240823
  6. CARBIDOPA\LEVODOPA [Suspect]
     Active Substance: CARBIDOPA\LEVODOPA
     Dosage: MD:10.0ML; CD:3.7ML/H; ED:2.50ML; CND:2.5ML/H; ED:1.00ML, DURATION TEXT: GOES TO 24 HOURS
     Route: 050
     Dates: start: 20240911, end: 20241031
  7. CARBIDOPA\LEVODOPA [Suspect]
     Active Substance: CARBIDOPA\LEVODOPA
     Dosage: PAST THERAPY: STOPPED DUE TO SWITCH TO LECIGON, REMAINS AT 24 HOURS
     Route: 050
     Dates: start: 20211115, end: 20230117
  8. CARBIDOPA\LEVODOPA [Suspect]
     Active Substance: CARBIDOPA\LEVODOPA
     Dosage: FIRST ADMIN DATE: 2024, DURATION TEXT: GOES TO 24 HOURS
     Route: 050
  9. CARBIDOPA\LEVODOPA [Suspect]
     Active Substance: CARBIDOPA\LEVODOPA
     Dosage: CND:2.5ML/H; ED:1.00ML, DURATION TEXT: GOES TO 24 HOURS
     Route: 050
     Dates: start: 20240829, end: 20240829
  10. ZINC [Concomitant]
     Active Substance: ZINC
     Indication: Product used for unknown indication
  11. MOVICOLON [Concomitant]
     Active Substance: POLYETHYLENE GLYCOL 3350\POTASSIUM CHLORIDE\SODIUM BICARBONATE\SODIUM CHLORIDE
     Indication: Gastrointestinal motility disorder
  12. CARBIDOPA\LEVODOPA [Concomitant]
     Active Substance: CARBIDOPA\LEVODOPA
     Indication: Parkinson^s disease
     Dosage: 200/50MG
     Route: 048
  13. ROTIGOTINE [Concomitant]
     Active Substance: ROTIGOTINE
     Indication: Parkinson^s disease
     Dosage: 8MG/24HOUR
     Route: 062
  14. POLYETHYLENE GLYCOLS [Concomitant]
     Active Substance: POLYETHYLENE GLYCOLS
     Indication: Laxative supportive care
     Dosage: 1 TO 2 SACHETS PER DAY
     Route: 048
  15. POLYETHYLENE GLYCOLS [Concomitant]
     Active Substance: POLYETHYLENE GLYCOLS
     Indication: Laxative supportive care
     Dosage: 2 TO 4 SACHETS PER DAY
  16. ENTACAPONE [Concomitant]
     Active Substance: ENTACAPONE
     Indication: Product used for unknown indication
  17. CARBIDOPA\ENTACAPONE\LEVODOPA [Concomitant]
     Active Substance: CARBIDOPA\ENTACAPONE\LEVODOPA
     Indication: Parkinson^s disease
     Dates: start: 20211115, end: 20230117

REACTIONS (13)
  - Mental disorder [Not Recovered/Not Resolved]
  - Emotional disorder [Not Recovered/Not Resolved]
  - Diarrhoea [Not Recovered/Not Resolved]
  - Muscle spasms [Not Recovered/Not Resolved]
  - Stoma site irritation [Recovering/Resolving]
  - Apathy [Not Recovered/Not Resolved]
  - Spinal compression fracture [Not Recovered/Not Resolved]
  - Parkinson^s disease [Not Recovered/Not Resolved]
  - Pain [Not Recovered/Not Resolved]
  - Underweight [Not Recovered/Not Resolved]
  - Restless legs syndrome [Not Recovered/Not Resolved]
  - Suspiciousness [Recovering/Resolving]
  - Loss of personal independence in daily activities [Not Recovered/Not Resolved]

NARRATIVE: CASE EVENT DATE: 20240101
